FAERS Safety Report 8207275-1 (Version None)
Quarter: 2012Q1

REPORT INFORMATION
  Report Type: 
  Country: None (occurrence: None)
  Receive Date: 20120314
  Receipt Date: 20120312
  Transmission Date: 20120608
  Serious: Yes (Disabling)
  Sender: FDA-Public Use
  Company Number: US-PFIZER INC-2012065270

PATIENT
  Sex: Female
  Weight: 96.145 kg

DRUGS (3)
  1. FLEXERIL [Concomitant]
     Dosage: UNK
  2. LYRICA [Suspect]
     Indication: NEURALGIA
     Dosage: 75 MG, 1X/DAY
     Route: 048
  3. LYRICA [Suspect]
     Indication: MYALGIA

REACTIONS (2)
  - MYALGIA [None]
  - BALANCE DISORDER [None]
